FAERS Safety Report 7323147-9 (Version None)
Quarter: 2011Q1

REPORT INFORMATION
  Report Type: 
  Country: None (occurrence: None)
  Receive Date: 20110301
  Receipt Date: 20110224
  Transmission Date: 20110831
  Serious: Yes (Disabling, Other)
  Sender: FDA-Public Use
  Company Number: GB-PFIZER INC-2011041172

PATIENT
  Age: 27 Year
  Sex: Female
  Weight: 50 kg

DRUGS (1)
  1. CHAMPIX [Suspect]
     Indication: SMOKING CESSATION THERAPY
     Dosage: UNK
     Route: 048
     Dates: start: 20101001, end: 20101119

REACTIONS (2)
  - PSYCHOTIC DISORDER [None]
  - ALCOHOL INTERACTION [None]
